FAERS Safety Report 6206935-1 (Version None)
Quarter: 2009Q2

REPORT INFORMATION
  Report Type: 
  Country: None (occurrence: None)
  Receive Date: 20090528
  Receipt Date: 20090520
  Transmission Date: 20091009
  Serious: Yes (Hospitalization)
  Sender: FDA-Public Use
  Company Number: A0786491A

PATIENT
  Sex: Male
  Weight: 18 kg

DRUGS (3)
  1. SERETIDE [Suspect]
     Indication: ASTHMA
     Dosage: 2PUFF TWICE PER DAY
     Dates: start: 20070101
  2. SINGULAIR [Concomitant]
     Dates: start: 20070101
  3. AEROLIN [Concomitant]
     Dosage: 2PUFF TWICE PER DAY
     Dates: start: 20070101

REACTIONS (3)
  - DRUG ADMINISTRATION ERROR [None]
  - DYSPNOEA [None]
  - STOMATITIS [None]
